FAERS Safety Report 21931002 (Version 1)
Quarter: 2023Q1

REPORT INFORMATION
  Report Type: Spontaneous
  Country: US (occurrence: None)
  Receive Date: 20230130
  Receipt Date: 20230130
  Transmission Date: 20230418
  Serious: Yes (Hospitalization)
  Sender: FDA-Public Use
  Company Number: None

PATIENT
  Sex: Female
  Weight: 62.14 kg

DRUGS (10)
  1. CAPECITABINE [Suspect]
     Active Substance: CAPECITABINE
     Indication: Pancreatic carcinoma
     Dosage: 1000MG TWICE DAILY ORAL - 14 DAYS ON, 14 OFF
     Route: 048
  2. TEMOZOLOMIDE [Suspect]
     Active Substance: TEMOZOLOMIDE
     Indication: Pancreatic carcinoma
     Dosage: 450MG DAY 10-14 ORAL - 28 DAY CYCLE
     Route: 048
  3. FUROSEMIDE [Concomitant]
     Active Substance: FUROSEMIDE
  4. GLIMEPIRIDE [Concomitant]
     Active Substance: GLIMEPIRIDE
  5. LEVOTHYROXINE [Concomitant]
     Active Substance: LEVOTHYROXINE
  6. LISINOPRIL [Concomitant]
     Active Substance: LISINOPRIL
  7. METFORMIN [Concomitant]
     Active Substance: METFORMIN HYDROCHLORIDE
  8. MIRTAZAPINE [Concomitant]
     Active Substance: MIRTAZAPINE
  9. ONDANSETRON [Concomitant]
     Active Substance: ONDANSETRON
  10. TEMOZOLOMIDE [Concomitant]
     Active Substance: TEMOZOLOMIDE

REACTIONS (1)
  - Hospitalisation [None]
